FAERS Safety Report 6063071-5 (Version None)
Quarter: 2009Q1

REPORT INFORMATION
  Report Type: 
  Country: None (occurrence: None)
  Receive Date: 20090203
  Receipt Date: 20090123
  Transmission Date: 20090719
  Serious: Yes (Other)
  Sender: FDA-Public Use
  Company Number: PHHY2009ZA01786

PATIENT
  Sex: Male

DRUGS (4)
  1. ZOMETA [Suspect]
     Indication: METASTASES TO BONE
     Dosage: 4 MG, QMO
     Dates: start: 20070525, end: 20080704
  2. PREDNISONE [Concomitant]
     Dosage: 5 MG, BID
     Dates: start: 20070530, end: 20081201
  3. TAXOTERE [Concomitant]
     Indication: PROSTATE CANCER
     Dosage: 120 MG, 3 WEEKLY
     Dates: start: 20070302, end: 20070924
  4. NOVANTRONE [Concomitant]
     Indication: PROSTATE CANCER
     Dosage: 25 MG, 3 WEEKLY
     Dates: start: 20071008, end: 20080311

REACTIONS (4)
  - ABSCESS DRAINAGE [None]
  - ABSCESS JAW [None]
  - ORAL DISCOMFORT [None]
  - PAIN IN JAW [None]
